FAERS Safety Report 5488773-0 (Version None)
Quarter: 2007Q4

REPORT INFORMATION
  Report Type: 
  Country: None (occurrence: None)
  Receive Date: 20071017
  Receipt Date: 20071010
  Transmission Date: 20080405
  Serious: Yes (Death)
  Sender: FDA-Public Use
  Company Number: DE-GENENTECH-206998

PATIENT
  Sex: Male

DRUGS (17)
  1. RITUXIMAB [Suspect]
     Indication: DIFFUSE LARGE B-CELL LYMPHOMA
     Dosage: 670 MG, UNK
     Route: 042
     Dates: start: 20040314, end: 20040504
  2. DEXAMETHASONE 0.5MG TAB [Suspect]
     Indication: DIFFUSE LARGE B-CELL LYMPHOMA
     Dosage: 40 MG, UNK
     Dates: start: 20040316
  3. CYTARABINE [Suspect]
     Indication: DIFFUSE LARGE B-CELL LYMPHOMA
     Dosage: 400 MG/M2, UNK
     Dates: start: 20040318
  4. CISPLATIN [Suspect]
     Indication: DIFFUSE LARGE B-CELL LYMPHOMA
     Dosage: 100 MG/M2, UNK
     Dates: start: 20040316
  5. NEUPOGEN [Concomitant]
     Dates: start: 20040412, end: 20040412
  6. NEUPOGEN [Concomitant]
     Dosage: 340 A?G, UNK
     Dates: start: 20040510, end: 20040513
  7. PANTOPRAZOLE SODIUM [Concomitant]
     Dosage: 40 MG, UNK
     Route: 042
  8. NEOMYCIN [Concomitant]
  9. DEXAMETHASONE 0.5MG TAB [Concomitant]
     Dosage: 4 MG, UNK
     Route: 042
  10. GRANOCYTE [Concomitant]
     Dosage: 34 UNK, UNK
     Route: 058
  11. SELENASE [Concomitant]
     Dosage: 5 AMP, UNK
  12. MAGNESIUM SULFATE [Concomitant]
  13. ACC [Concomitant]
     Dosage: 1 AMP, UNK
  14. PRIMAXIN [Concomitant]
     Dosage: 500 MG, UNK
  15. CLONT [Concomitant]
     Dosage: 500 MG, UNK
  16. A/T/S [Concomitant]
  17. LENOGRASTIM [Suspect]
     Indication: DRUG USE FOR UNKNOWN INDICATION

REACTIONS (3)
  - COLITIS [None]
  - PERITONITIS [None]
  - SEPSIS [None]
